FAERS Safety Report 5793199-6 (Version None)
Quarter: 2008Q2

REPORT INFORMATION
  Report Type: 
  Country: None (occurrence: None)
  Receive Date: 20080626
  Receipt Date: 20080626
  Transmission Date: 20081010
  Serious: Yes (Hospitalization)
  Sender: FDA-Public Use
  Company Number: None

PATIENT
  Age: 49 Year
  Sex: Male

DRUGS (2)
  1. IRESSA [Suspect]
     Indication: HEAD AND NECK CANCER
     Dosage: 500 MG PO QD
     Route: 048
     Dates: start: 20080512, end: 20080601
  2. OXYCODONE AND ACETAMINOPHEN [Concomitant]

REACTIONS (2)
  - DISEASE PROGRESSION [None]
  - DYSPNOEA [None]
